FAERS Safety Report 13469765 (Version 1)
Quarter: 2017Q2

REPORT INFORMATION
  Report Type: Report from Study
  Country: None (occurrence: GB)
  Receive Date: 20170422
  Receipt Date: 20170422
  Transmission Date: 20170830
  Serious: Yes (Hospitalization)
  Sender: FDA-Public Use
  Company Number: GB-ABBVIE-17K-167-1949883-00

PATIENT
  Age: 69 Year
  Sex: Female

DRUGS (2)
  1. HUMIRA [Suspect]
     Active Substance: ADALIMUMAB
     Indication: RHEUMATOID ARTHRITIS
     Route: 058
     Dates: start: 20031218
  2. LEFLUNOMIDE. [Concomitant]
     Active Substance: LEFLUNOMIDE
     Indication: RHEUMATOID ARTHRITIS
     Dates: start: 20120712

REACTIONS (2)
  - Dehydration [Recovered/Resolved]
  - Delirium [Recovered/Resolved]

NARRATIVE: CASE EVENT DATE: 20170222
